FAERS Safety Report 21696060 (Version 1)
Quarter: 2022Q4

REPORT INFORMATION
  Report Type: Spontaneous
  Country: US (occurrence: None)
  Receive Date: 20221207
  Receipt Date: 20221207
  Transmission Date: 20230113
  Serious: Yes (Life-Threatening, Other)
  Sender: FDA-Public Use
  Company Number: None

PATIENT
  Age: 53 Year
  Sex: Male
  Weight: 76.5 kg

DRUGS (1)
  1. PANZYGA [Suspect]
     Active Substance: HUMAN IMMUNOGLOBULIN G
     Indication: Multifocal motor neuropathy
     Dosage: OTHER FREQUENCY : 60GM DAILY X 3 DAY;?
     Route: 041
     Dates: start: 20221109, end: 20221111

REACTIONS (8)
  - Infusion related reaction [None]
  - Infusion related reaction [None]
  - Fatigue [None]
  - Headache [None]
  - Pulmonary embolism [None]
  - Hepatic enzyme increased [None]
  - Hepatomegaly [None]
  - Nephrolithiasis [None]

NARRATIVE: CASE EVENT DATE: 20221122
